FAERS Safety Report 19196699 (Version 1)
Quarter: 2021Q2

REPORT INFORMATION
  Report Type: Spontaneous
  Country: US (occurrence: US)
  Receive Date: 20210430
  Receipt Date: 20210430
  Transmission Date: 20210717
  Serious: No
  Sender: FDA-Public Use
  Company Number: US-BAUSCH-BL-2021-010771

PATIENT
  Age: 70 Year
  Sex: Female

DRUGS (2)
  1. LUMIFY [Suspect]
     Active Substance: BRIMONIDINE TARTRATE
     Dosage: IN THE MORNING
     Route: 047
     Dates: start: 20210324
  2. LUMIFY [Suspect]
     Active Substance: BRIMONIDINE TARTRATE
     Indication: OCULAR HYPERAEMIA
     Route: 047
     Dates: start: 202102

REACTIONS (4)
  - Product quality issue [Unknown]
  - Therapeutic product effect incomplete [Unknown]
  - Ocular hyperaemia [Unknown]
  - Rebound effect [Unknown]

NARRATIVE: CASE EVENT DATE: 202102
